FAERS Safety Report 25191592 (Version 1)
Quarter: 2025Q2

REPORT INFORMATION
  Report Type: Report from Study
  Country: US (occurrence: US)
  Receive Date: 20250414
  Receipt Date: 20250414
  Transmission Date: 20250716
  Serious: Yes (Hospitalization)
  Sender: TG THERAPEUTICS
  Company Number: US-TG THERAPEUTICS INC.-TGT004871

PATIENT

DRUGS (2)
  1. UBLITUXIMAB [Suspect]
     Active Substance: UBLITUXIMAB
     Indication: Multiple sclerosis
     Route: 042
     Dates: start: 20250220, end: 20250220
  2. UBLITUXIMAB [Suspect]
     Active Substance: UBLITUXIMAB
     Route: 042
     Dates: start: 20250306, end: 20250306

REACTIONS (3)
  - Enterocolitis viral [Recovered/Resolved]
  - Cystitis [Recovered/Resolved with Sequelae]
  - Norovirus infection [Recovered/Resolved]

NARRATIVE: CASE EVENT DATE: 20250309
